FAERS Safety Report 10867300 (Version 2)
Quarter: 2015Q1

REPORT INFORMATION
  Report Type: Spontaneous
  Country: JP (occurrence: JP)
  Receive Date: 20150225
  Receipt Date: 20150324
  Transmission Date: 20150721
  Serious: Yes (Death, Life-Threatening, Other)
  Sender: FDA-Public Use
  Company Number: JP-PFIZER INC-2015020115

PATIENT
  Age: 73 Year
  Sex: Male
  Weight: 54.5 kg

DRUGS (24)
  1. DIART [Concomitant]
     Active Substance: AZOSEMIDE
     Indication: DIURETIC THERAPY
     Dosage: 30 MG, 1X/DAY
     Dates: start: 20150101, end: 20150106
  2. AMIODARONE [Concomitant]
     Active Substance: AMIODARONE
     Indication: ATRIAL FIBRILLATION
  3. PHYSIOLOGICAL SALINE [Concomitant]
     Dosage: 4 ML/H X 24H IV INFUSION DAILY
     Route: 042
     Dates: start: 20141231, end: 20150107
  4. HUMALIN R [Concomitant]
     Indication: HYPERGLYCAEMIA
     Dosage: 0.3U/H X 24H IV. INFUSION
     Route: 042
     Dates: start: 20141231, end: 20150107
  5. NOVO HEPARIN [Concomitant]
     Active Substance: HEPARIN SODIUM
     Indication: ANTICOAGULANT THERAPY
     Dosage: 10000U/DAY
     Route: 042
     Dates: start: 20150101, end: 20150107
  6. SAMSCA [Concomitant]
     Active Substance: TOLVAPTAN
     Indication: DIURETIC THERAPY
     Dosage: 7.5 MG, 1X/DAY
     Dates: start: 20150104, end: 20150106
  7. ALBUMINAR [Concomitant]
     Active Substance: ALBUMIN (HUMAN)
     Dosage: 50 ML, 2X/DAY
     Route: 042
     Dates: start: 20140105, end: 20150107
  8. INOVAN [Concomitant]
     Active Substance: DOPAMINE HYDROCHLORIDE
     Indication: HYPOTENSION
     Dosage: 1? (1.1 ML/H X 24H), IV INFUSION DAIL
     Route: 042
     Dates: start: 20141231, end: 20150107
  9. POTASSIUM CHLORIDE. [Concomitant]
     Active Substance: POTASSIUM CHLORIDE
     Indication: SUPPLEMENTATION THERAPY
     Dosage: 3 MEQ/H X 24H IV. INFUSION DAILY
     Route: 042
     Dates: start: 20141231, end: 20150107
  10. MAGNESIUM SULFATE. [Concomitant]
     Active Substance: MAGNESIUM SULFATE
     Indication: SUPPLEMENTATION THERAPY
     Dosage: 2 MEQ/H X 24H IV. INFUSION DAILY
     Route: 042
     Dates: start: 20141231, end: 20150107
  11. DOBUPUM [Concomitant]
     Active Substance: DOBUTAMINE HYDROCHLORIDE
     Indication: HYPOTENSION
     Dosage: 1 ? (1.1 ML/H X 24H) IV INFUSION
     Route: 042
     Dates: start: 20141231, end: 20150107
  12. PROPOFOL. [Concomitant]
     Active Substance: PROPOFOL
     Indication: SEDATION
     Dosage: 8 ML/H X 24H IV. INFUSION DAILY
     Route: 042
     Dates: start: 20141231, end: 20150107
  13. AMIODARONE [Concomitant]
     Active Substance: AMIODARONE
     Indication: EPILEPSY
     Dosage: 200 MG, 2X/DAY
     Dates: start: 20150105, end: 20150106
  14. BICANATE [Concomitant]
     Dosage: 20 ML/H X 24H IV INFUSION DAILY
     Route: 042
     Dates: start: 20141231, end: 20150107
  15. NOREPINEPHRINE [Concomitant]
     Active Substance: NOREPINEPHRINE\NOREPINEPHRINE BITARTRATE
     Indication: HYPOTENSION
     Dosage: 0.08?(2.5ML/H X 24H) IV INFUSION
     Route: 042
     Dates: start: 20141231, end: 20150107
  16. FENTANYL. [Concomitant]
     Active Substance: FENTANYL
     Indication: SEDATION
     Dosage: 30MICROGRAM/H X 24H IV. INFUSION DAILY
     Route: 042
     Dates: start: 20150102, end: 20150107
  17. TAKEPRON [Concomitant]
     Active Substance: LANSOPRAZOLE
     Indication: PROPHYLAXIS AGAINST GASTROINTESTINAL ULCER
     Dosage: 15 MG, 1X/DAY
     Dates: start: 20150102, end: 20150106
  18. TEGRETOL [Concomitant]
     Active Substance: CARBAMAZEPINE
     Indication: EPILEPSY
     Dosage: 200 MG, 1X/DAY
     Dates: start: 20150105, end: 20150106
  19. FOSPHENYTOIN SODIUM. [Suspect]
     Active Substance: FOSPHENYTOIN SODIUM
     Indication: GENERALISED TONIC-CLONIC SEIZURE
  20. FOSPHENYTOIN SODIUM. [Suspect]
     Active Substance: FOSPHENYTOIN SODIUM
     Indication: SEIZURE
     Dosage: 1200 MG, DAILY
     Route: 042
     Dates: start: 20150105, end: 20150105
  21. WARFARIN [Concomitant]
     Active Substance: WARFARIN
     Indication: ANTICOAGULANT THERAPY
     Dosage: 2 MG, 1X/DAY
     Dates: start: 20150102, end: 20150106
  22. GLUCOSE [Concomitant]
     Active Substance: DEXTROSE
     Indication: NUTRITIONAL SUPPLEMENTATION
     Dosage: 20 ML/H X 24H IV INFUSION DAILY
     Route: 042
     Dates: start: 20141231, end: 20150107
  23. BAYASPIRIN [Concomitant]
     Active Substance: ASPIRIN
     Dosage: 100 MG, 1X/DAY
     Dates: start: 20150101, end: 20150106
  24. HANP [Concomitant]
     Active Substance: CARPERITIDE
     Indication: URINE OUTPUT DECREASED
     Dosage: 0.01A (0.4 ML/H X 24H) IV INFUSION
     Route: 042
     Dates: start: 20141231, end: 20150107

REACTIONS (2)
  - Aortic aneurysm rupture [Fatal]
  - Blood pressure systolic decreased [Recovered/Resolved]

NARRATIVE: CASE EVENT DATE: 20150105
